FAERS Safety Report 9473944 (Version 1)
Quarter: 2013Q3

REPORT INFORMATION
  Report Type: Spontaneous
  Country: US (occurrence: US)
  Receive Date: 20130823
  Receipt Date: 20130823
  Transmission Date: 20140515
  Serious: Yes (Hospitalization)
  Sender: FDA-Public Use
  Company Number: US-B.I. PHARMACEUTICALS,INC./RIDGEFIELD-2013-BI-25221BP

PATIENT
  Sex: Female

DRUGS (16)
  1. COMBIVENT [Suspect]
     Indication: CHRONIC OBSTRUCTIVE PULMONARY DISEASE
     Dosage: STRENGTH: 18 MCG / 103 MCG; DAILY DOSE: 144MCG/824 MCG
     Route: 055
     Dates: start: 2009
  2. FLONASE [Concomitant]
     Route: 045
  3. DICLOSENAC [Concomitant]
     Route: 048
  4. IRON [Concomitant]
     Route: 048
  5. NORTRIPTYLINE [Concomitant]
     Route: 048
  6. TIZANIDINE [Concomitant]
     Route: 048
  7. NEURONTIN [Concomitant]
     Route: 048
  8. CLONAZEPAM [Concomitant]
     Route: 048
  9. LAMICTAL [Concomitant]
     Route: 048
  10. VITAMIN D [Concomitant]
     Route: 048
  11. LISINOPRIL/HCTZ [Concomitant]
     Route: 048
  12. ALBUTEROL [Concomitant]
     Route: 055
  13. FLEXERIL [Concomitant]
     Route: 048
  14. LEVOTHYROXINE [Concomitant]
     Route: 048
  15. PERCOCET [Concomitant]
     Route: 048
  16. SPIRIVA HANDIHALER [Concomitant]
     Dosage: 18 MCG
     Route: 055
     Dates: start: 2013

REACTIONS (2)
  - Arthritis [Not Recovered/Not Resolved]
  - Hip fracture [Recovered/Resolved]
